FAERS Safety Report 13981736 (Version 1)
Quarter: 2017Q3

REPORT INFORMATION
  Report Type: Spontaneous
  Country: US (occurrence: US)
  Receive Date: 20170918
  Receipt Date: 20170918
  Transmission Date: 20171128
  Serious: No
  Sender: FDA-Public Use
  Company Number: US-BION-006423

PATIENT
  Sex: Female

DRUGS (1)
  1. ZYRTEC [Suspect]
     Active Substance: CETIRIZINE HYDROCHLORIDE
     Indication: PRODUCT USED FOR UNKNOWN INDICATION
     Dosage: RECEIVED 1 PILL OF ZYRTEC LIQUID GELS

REACTIONS (4)
  - Skin discolouration [None]
  - Product packaging issue [Unknown]
  - Product colour issue [Unknown]
  - Syncope [Recovered/Resolved]
